FAERS Safety Report 25858910 (Version 1)
Quarter: 2025Q3

REPORT INFORMATION
  Report Type: Spontaneous
  Country: EU (occurrence: EU)
  Receive Date: 20250929
  Receipt Date: 20250929
  Transmission Date: 20251020
  Serious: Yes (Other)
  Sender: MERCK SHARP & DOHME LLC
  Company Number: EU-009507513-2332173

PATIENT
  Age: 71 Year
  Sex: Female

DRUGS (3)
  1. PEMBROLIZUMAB [Suspect]
     Active Substance: PEMBROLIZUMAB
     Indication: Triple negative breast cancer
     Dates: start: 20250731
  2. CARBOPLATIN [Suspect]
     Active Substance: CARBOPLATIN
     Indication: Triple negative breast cancer
     Dates: start: 20250731
  3. PACLITAXEL [Suspect]
     Active Substance: PACLITAXEL

REACTIONS (2)
  - Neutropenia [Unknown]
  - Rash [Recovering/Resolving]

NARRATIVE: CASE EVENT DATE: 20250731
